FAERS Safety Report 8970892 (Version 1)
Quarter: 2012Q4

REPORT INFORMATION
  Report Type: Report from Study
  Country: AU (occurrence: AU)
  Receive Date: 20121217
  Receipt Date: 20121217
  Transmission Date: 20130627
  Serious: Yes (Life-Threatening, Hospitalization, Other)
  Sender: FDA-Public Use
  Company Number: AU-ASTRAZENECA-2012SE93457

PATIENT
  Age: 0 Day
  Sex: Male
  Weight: 3.2 kg

DRUGS (7)
  1. SEROQUEL XR [Suspect]
     Indication: PSYCHOTIC DISORDER
     Dosage: 100-300 MG DAILY
     Route: 064
  2. FLUOXETINE [Concomitant]
     Indication: ANTIDEPRESSANT THERAPY
     Route: 064
  3. NIFEDIPINE [Concomitant]
     Indication: HYPERTENSION
     Dosage: FROM 14/40 WKS STOPPED AT 32/40 WKS
     Route: 064
  4. CELESTONE [Concomitant]
     Indication: MATERNAL THERAPY TO ENHANCE FOETAL LUNG MATURITY
     Dosage: FROM AT 32/40 WKS AGAIN AT 36/40 WKS
     Route: 064
  5. ELEVIT [Concomitant]
     Indication: VITAMIN SUPPLEMENTATION
     Route: 064
     Dates: end: 20120920
  6. FOLATE [Concomitant]
     Indication: PROPHYLAXIS OF NEURAL TUBE DEFECT
     Route: 064
  7. FERROGRADUMET+C [Concomitant]
     Indication: VITAMIN SUPPLEMENTATION
     Route: 064
     Dates: end: 20120920

REACTIONS (2)
  - Foetal distress syndrome [Recovered/Resolved]
  - Drug withdrawal syndrome neonatal [Recovered/Resolved]
